FAERS Safety Report 10235159 (Version 1)
Quarter: 2014Q2

REPORT INFORMATION
  Report Type: Spontaneous
  Country: US (occurrence: None)
  Receive Date: 20140612
  Receipt Date: 20140612
  Transmission Date: 20141212
  Serious: No
  Sender: FDA-Public Use
  Company Number: None

PATIENT
  Age: 51 Year
  Sex: Male
  Weight: 72.58 kg

DRUGS (1)
  1. PERCOCET [Suspect]
     Indication: PAIN
     Dosage: PERCOCET 10/325
     Route: 048

REACTIONS (2)
  - Abdominal discomfort [None]
  - Drug ineffective [None]
